FAERS Safety Report 4746425-6 (Version None)
Quarter: 2005Q3

REPORT INFORMATION
  Report Type: 
  Country: None (occurrence: None)
  Receive Date: 20050816
  Receipt Date: 20050816
  Transmission Date: 20060218
  Serious: Yes (Hospitalization)
  Sender: FDA-Public Use
  Company Number: None

PATIENT
  Age: 60 Year
  Sex: Female
  Weight: 75.3198 kg

DRUGS (13)
  1. TARCEVA [Suspect]
     Indication: BREAST CANCER METASTATIC
     Dosage: 150 MG PO QD
     Route: 048
     Dates: start: 20040921
  2. LETROZOLE [Suspect]
     Indication: BREAST CANCER METASTATIC
     Dosage: 2.5 MG PO QD
     Route: 048
     Dates: start: 20040921
  3. METFORMIN HCL [Concomitant]
  4. AMARYL [Concomitant]
  5. HYDROCHLOROTHIAZIDE [Concomitant]
  6. CLONIDINE [Concomitant]
  7. LISINOPRIL [Concomitant]
  8. SYNTHROID [Concomitant]
  9. IRON [Concomitant]
  10. MAG OXIDE [Concomitant]
  11. NICARDIPINE HCL [Concomitant]
  12. ASPIRIN [Concomitant]
  13. M.V.I. [Concomitant]

REACTIONS (6)
  - ASTHENIA [None]
  - DIARRHOEA [None]
  - NAUSEA [None]
  - PLATELET COUNT DECREASED [None]
  - RENAL FAILURE ACUTE [None]
  - VOMITING [None]
